FAERS Safety Report 18159085 (Version 1)
Quarter: 2020Q3

REPORT INFORMATION
  Report Type: Other
  Country: US (occurrence: US)
  Receive Date: 20200817
  Receipt Date: 20200817
  Transmission Date: 20201103
  Serious: Yes (Hospitalization)
  Sender: FDA-Public Use
  Company Number: US-STANDARD HOMEOPATHIC COMPANY-2088704

PATIENT
  Age: 40 Year
  Sex: Male

DRUGS (3)
  1. CALC. FLUOR. 6X TABLETS [Suspect]
     Active Substance: HOMEOPATHICS
     Indication: NASOPHARYNGITIS
     Route: 048
     Dates: start: 20200501, end: 20200721
  2. CALC. FLUOR. 6X TABLETS [Suspect]
     Active Substance: HOMEOPATHICS
     Indication: HAEMORRHOIDS
     Route: 048
     Dates: start: 20200501, end: 20200721
  3. CALC. FLUOR. 6X TABLETS [Suspect]
     Active Substance: HOMEOPATHICS
     Indication: SKIN FISSURES
     Route: 048
     Dates: start: 20200501, end: 20200721

REACTIONS (3)
  - Arthralgia [None]
  - Abscess [Unknown]
  - Rash [None]

NARRATIVE: CASE EVENT DATE: 20200501
